FAERS Safety Report 16781889 (Version 1)
Quarter: 2019Q3

REPORT INFORMATION
  Report Type: Spontaneous
  Country: IT (occurrence: IT)
  Receive Date: 20190906
  Receipt Date: 20190906
  Transmission Date: 20191005
  Serious: Yes (Death)
  Sender: FDA-Public Use
  Company Number: PHHY2019IT206296

PATIENT
  Age: 72 Year
  Sex: Male

DRUGS (1)
  1. MYCOPHENOLATE MOFETIL. [Suspect]
     Active Substance: MYCOPHENOLATE MOFETIL
     Indication: TRANSPLANT REJECTION
     Dosage: 1 G, QD
     Route: 048
     Dates: end: 20190402

REACTIONS (4)
  - Skin striae [Fatal]
  - Graft versus host disease [Fatal]
  - Enteritis [Fatal]
  - Diarrhoea haemorrhagic [Fatal]

NARRATIVE: CASE EVENT DATE: 20190401
